FAERS Safety Report 8190160-1 (Version None)
Quarter: 2012Q1

REPORT INFORMATION
  Report Type: 
  Country: None (occurrence: None)
  Receive Date: 20120305
  Receipt Date: 20120228
  Transmission Date: 20120608
  Serious: Yes (Death)
  Sender: FDA-Public Use
  Company Number: DSA_54380_2012

PATIENT
  Sex: Female

DRUGS (1)
  1. XENAZINE [Suspect]
     Indication: HUNTINGTON'S DISEASE
     Dosage: 62.5 MG TID ORAL
     Route: 048
     Dates: start: 20090210

REACTIONS (5)
  - DEATH [None]
  - HUNTINGTON'S DISEASE [None]
  - PNEUMONIA [None]
  - DISEASE PROGRESSION [None]
  - DYSPHAGIA [None]
